FAERS Safety Report 9516642 (Version 2)
Quarter: 2013Q3

REPORT INFORMATION
  Report Type: Spontaneous
  Country: JP (occurrence: JP)
  Receive Date: 20130911
  Receipt Date: 20130920
  Transmission Date: 20140515
  Serious: No
  Sender: FDA-Public Use
  Company Number: JP-GLAXOSMITHKLINE-B0921043A

PATIENT
  Age: 6 Decade
  Sex: Male

DRUGS (3)
  1. SERETIDE (50MCG/250MCG) [Suspect]
     Indication: ASTHMA
     Dosage: 500MCG TWICE PER DAY
     Route: 055
  2. UNIPHYL [Suspect]
     Indication: PRODUCT USED FOR UNKNOWN INDICATION
     Route: 048
     Dates: end: 201309
  3. SINGULAIR [Concomitant]
     Route: 048

REACTIONS (4)
  - Muscle spasms [Unknown]
  - Tremor [Unknown]
  - Muscle twitching [Unknown]
  - Overdose [Unknown]
